FAERS Safety Report 4656616-0 (Version None)
Quarter: 2005Q2

REPORT INFORMATION
  Report Type: 
  Country: None (occurrence: None)
  Receive Date: 20050509
  Receipt Date: 20050323
  Transmission Date: 20051028
  Serious: Yes (Hospitalization)
  Sender: FDA-Public Use
  Company Number: 2005UW04674

PATIENT
  Age: 53 Year
  Sex: Male
  Weight: 81.8 kg

DRUGS (2)
  1. CRESTOR [Suspect]
     Route: 048
     Dates: start: 20040827, end: 20050318
  2. CIPROFLOXACIN [Concomitant]
     Dates: start: 20050316

REACTIONS (28)
  - ADENOVIRUS INFECTION [None]
  - ASPARTATE AMINOTRANSFERASE INCREASED [None]
  - BODY TEMPERATURE INCREASED [None]
  - DECREASED APPETITE [None]
  - DEHYDRATION [None]
  - DIARRHOEA [None]
  - DIZZINESS [None]
  - DYSPNOEA EXERTIONAL [None]
  - FATIGUE [None]
  - HAPTOGLOBIN INCREASED [None]
  - HEADACHE [None]
  - HYPERHIDROSIS [None]
  - HYPONATRAEMIA [None]
  - INAPPROPRIATE ANTIDIURETIC HORMONE SECRETION [None]
  - LEUKOPENIA [None]
  - LYMPHOPENIA [None]
  - NEUTROPHIL COUNT DECREASED [None]
  - OBESITY [None]
  - ORAL INTAKE REDUCED [None]
  - PLEURAL EFFUSION [None]
  - PNEUMONIA [None]
  - PULMONARY TOXICITY [None]
  - PYREXIA [None]
  - RHABDOMYOLYSIS [None]
  - SEPSIS [None]
  - SOMNOLENCE [None]
  - TACHYPNOEA [None]
  - TREATMENT NONCOMPLIANCE [None]
